FAERS Safety Report 19585288 (Version 1)
Quarter: 2021Q3

REPORT INFORMATION
  Report Type: Spontaneous
  Country: US (occurrence: US)
  Receive Date: 20210721
  Receipt Date: 20210721
  Transmission Date: 20211014
  Serious: Yes (Hospitalization)
  Sender: FDA-Public Use
  Company Number: US-JNJFOC-20210718787

PATIENT
  Age: 26 Year
  Sex: Female
  Weight: 60 kg

DRUGS (1)
  1. TYLENOL PM [Suspect]
     Active Substance: ACETAMINOPHEN\DIPHENHYDRAMINE
     Indication: SUICIDE ATTEMPT
     Dosage: AT LEAST 19500 MG AT 20:00
     Route: 048
     Dates: start: 20010513, end: 20010513

REACTIONS (8)
  - Suicide attempt [Recovered/Resolved]
  - Lymphocyte count decreased [Recovered/Resolved]
  - Blood potassium decreased [Recovered/Resolved]
  - White blood cell count increased [Recovered/Resolved]
  - Intentional overdose [Recovered/Resolved]
  - Neutrophil count increased [Recovered/Resolved]
  - Acute hepatic failure [Recovered/Resolved]
  - Blood phosphorus decreased [Recovered/Resolved]

NARRATIVE: CASE EVENT DATE: 20010513
